FAERS Safety Report 4777913-4 (Version None)
Quarter: 2005Q3

REPORT INFORMATION
  Report Type: 
  Country: None (occurrence: None)
  Receive Date: 20050926
  Receipt Date: 20050623
  Transmission Date: 20060218
  Serious: Yes (Hospitalization)
  Sender: FDA-Public Use
  Company Number: 2005UW09562

PATIENT
  Age: 31596 Day
  Sex: Female
  Weight: 63.6 kg

DRUGS (7)
  1. NEXIUM [Suspect]
     Indication: GASTROOESOPHAGEAL REFLUX DISEASE
     Route: 048
     Dates: start: 20050620, end: 20050628
  2. PRILOSEC [Suspect]
     Indication: GASTROOESOPHAGEAL REFLUX DISEASE
     Route: 048
     Dates: start: 20050620, end: 20050628
  3. ASPIRIN [Concomitant]
  4. HYDROCHLOROTHIAZIDE [Concomitant]
  5. ENALAPRIL [Concomitant]
  6. METOPROLOL [Concomitant]
  7. ISOSORBIDE MONONITRATE [Concomitant]

REACTIONS (4)
  - ABDOMINAL PAIN [None]
  - FAECES DISCOLOURED [None]
  - GASTRIC DISORDER [None]
  - HAEMATOCHEZIA [None]
